FAERS Safety Report 17061617 (Version 11)
Quarter: 2022Q1

REPORT INFORMATION
  Report Type: Report from Study
  Country: JP (occurrence: JP)
  Receive Date: 20191121
  Receipt Date: 20220307
  Transmission Date: 20220423
  Serious: Yes (Hospitalization, Other)
  Sender: FDA-Public Use
  Company Number: JP-ALNYLAM PHARMACEUTICALS, INC.-ALN-2019-000878

PATIENT

DRUGS (62)
  1. ONPATTRO [Suspect]
     Active Substance: PATISIRAN SODIUM
     Indication: Hereditary neuropathic amyloidosis
     Dosage: 11.1 MILLIGRAM
     Route: 041
     Dates: start: 20191106, end: 20200129
  2. ONPATTRO [Suspect]
     Active Substance: PATISIRAN SODIUM
     Dosage: 11.4 MILLIGRAM
     Route: 041
     Dates: start: 20200219, end: 20200219
  3. ONPATTRO [Suspect]
     Active Substance: PATISIRAN SODIUM
     Dosage: 10.5 MILLIGRAM
     Route: 041
     Dates: start: 20200311, end: 20200513
  4. ONPATTRO [Suspect]
     Active Substance: PATISIRAN SODIUM
     Dosage: 11.1 MILLIGRAM
     Route: 041
     Dates: start: 20200603, end: 20200624
  5. ONPATTRO [Suspect]
     Active Substance: PATISIRAN SODIUM
     Dosage: 11.4 MILLIGRAM
     Route: 041
     Dates: start: 20200715, end: 20200805
  6. ONPATTRO [Suspect]
     Active Substance: PATISIRAN SODIUM
     Dosage: 11.7 MILLIGRAM
     Route: 041
     Dates: start: 20200826, end: 20201118
  7. ONPATTRO [Suspect]
     Active Substance: PATISIRAN SODIUM
     Dosage: 12 MILLIGRAM
     Route: 041
     Dates: start: 20201209, end: 20210106
  8. ONPATTRO [Suspect]
     Active Substance: PATISIRAN SODIUM
     Dosage: 11.7 MILLIGRAM
     Route: 041
     Dates: start: 20210127, end: 20210217
  9. ONPATTRO [Suspect]
     Active Substance: PATISIRAN SODIUM
     Dosage: 12 MILLIGRAM
     Route: 041
     Dates: start: 20210310, end: 20210421
  10. GASTER [Concomitant]
     Active Substance: FAMOTIDINE
     Indication: Prophylaxis
     Dosage: 20 MILLIGRAM, SINGLE
     Route: 042
     Dates: start: 20191106, end: 20200129
  11. POLARAMINE [Concomitant]
     Active Substance: DEXCHLORPHENIRAMINE MALEATE
     Indication: Prophylaxis
     Dosage: 5 MILLIGRAM, SINGLE
     Route: 042
     Dates: start: 20191106
  12. DEXAMETHASONE SODIUM PHOSPHATE [Concomitant]
     Active Substance: DEXAMETHASONE SODIUM PHOSPHATE
     Indication: Prophylaxis
     Dosage: 10 MILLIGRAM, SINGLE
     Route: 042
     Dates: start: 20191106
  13. CALONAL [Concomitant]
     Active Substance: ACETAMINOPHEN
     Indication: Prophylaxis
     Dosage: 100 MILLIGRAM, SINGLE
     Route: 048
     Dates: start: 20191106, end: 20191127
  14. CALONAL [Concomitant]
     Active Substance: ACETAMINOPHEN
     Indication: Prophylaxis
     Dosage: 400 MILLIGRAM, SINGLE
     Route: 048
     Dates: start: 20191106, end: 20191127
  15. CALONAL [Concomitant]
     Active Substance: ACETAMINOPHEN
     Dosage: 500 MILLIGRAM, SINGLE
     Route: 048
     Dates: start: 20191218
  16. FAMOTIDINE [Concomitant]
     Active Substance: FAMOTIDINE
     Indication: Prophylaxis
     Dosage: 20 MILLIGRAM, SINGLE
     Route: 042
     Dates: start: 20200219
  17. VITAMINS [Concomitant]
     Active Substance: VITAMINS
     Indication: Vitamin supplementation
     Dosage: 1 GRAM, QD
     Route: 048
     Dates: start: 20191106
  18. VITAMINS [Concomitant]
     Active Substance: VITAMINS
     Indication: Prophylaxis
  19. PENTAZOCINE [Concomitant]
     Active Substance: PENTAZOCINE
     Indication: Cardiac pacemaker insertion
     Dosage: 15 MILLIGRAM
     Route: 065
     Dates: start: 20200407, end: 20200407
  20. IOMERON [Concomitant]
     Active Substance: IOMEPROL
     Indication: Cardiac pacemaker insertion
     Dosage: UNK
     Route: 065
     Dates: start: 20200407, end: 20200407
  21. XYLOCAINE [Concomitant]
     Active Substance: LIDOCAINE HYDROCHLORIDE
     Indication: Cardiac pacemaker insertion
     Dosage: UNK
     Route: 065
     Dates: start: 20200407, end: 20200407
  22. CEFAZOLIN SODIUM [Concomitant]
     Active Substance: CEFAZOLIN SODIUM
     Indication: Cardiac pacemaker insertion
     Dosage: 2 GRAM
     Route: 065
     Dates: start: 20200407, end: 20200407
  23. HEPARININ [Concomitant]
     Indication: Cardiac pacemaker insertion
     Dosage: 10 KUNITS
     Route: 065
     Dates: start: 20200407, end: 20200407
  24. CALCIUM CHLORIDE\POTASSIUM CHLORIDE\SODIUM ACETATE\SODIUM CHLORIDE [Concomitant]
     Active Substance: CALCIUM CHLORIDE\POTASSIUM CHLORIDE\SODIUM ACETATE\SODIUM CHLORIDE
     Indication: Cardiac pacemaker insertion
     Dosage: UNK
     Route: 065
     Dates: start: 20200407, end: 20200407
  25. RAMOSETRON HYDROCHLORIDE [Concomitant]
     Active Substance: RAMOSETRON HYDROCHLORIDE
     Indication: Constipation
     Dosage: 5 MICROGRAM, BID
     Route: 048
     Dates: end: 20200228
  26. RAMOSETRON HYDROCHLORIDE [Concomitant]
     Active Substance: RAMOSETRON HYDROCHLORIDE
     Indication: Diarrhoea
  27. FEXOFENADINE HYDROCHLORIDE [Concomitant]
     Active Substance: FEXOFENADINE HYDROCHLORIDE
     Indication: Rhinitis allergic
     Dosage: 60 MILLIGRAM, QD
     Route: 048
  28. LYRICA [Concomitant]
     Active Substance: PREGABALIN
     Indication: Neuropathy peripheral
     Dosage: 300 MILLIGRAM
     Route: 048
  29. LYRICA [Concomitant]
     Active Substance: PREGABALIN
     Dosage: 75 MILLIGRAM, BID
     Route: 048
  30. HERBALS [Concomitant]
     Active Substance: HERBALS
     Indication: Muscle spasms
     Dosage: 2.5 GRAM, QD
     Route: 048
  31. LOPERAMIDE [Concomitant]
     Active Substance: LOPERAMIDE
     Indication: Diarrhoea
     Dosage: 1 MILLIGRAM, BID
     Route: 065
  32. LOPERAMIDE [Concomitant]
     Active Substance: LOPERAMIDE
     Indication: Diarrhoea
     Dosage: 1 MILLIGRAM, BID
     Route: 048
     Dates: start: 20200513
  33. MIDODRINE HYDROCHLORIDE [Concomitant]
     Active Substance: MIDODRINE HYDROCHLORIDE
     Indication: Hypotension
     Dosage: 2 MILLIGRAM, BID
     Route: 065
  34. FURSULTIAMINE [Concomitant]
     Active Substance: FURSULTIAMINE
     Indication: Vitamin B1 deficiency
     Dosage: 50 MILLIGRAM, BID
     Route: 065
     Dates: start: 20200213
  35. FURSULTIAMINE [Concomitant]
     Active Substance: FURSULTIAMINE
     Indication: Vitamin B1 deficiency
     Dosage: 25 MILLIGRAM, BID
     Route: 048
     Dates: start: 20191112
  36. LAC-B GRANULAR POWDER N [Concomitant]
     Indication: Enterocolitis
     Dosage: 4 MILLIGRAM
     Route: 048
  37. LAC-B GRANULAR POWDER N [Concomitant]
     Indication: Diarrhoea
     Dosage: 1 GRAM, BID
     Route: 048
     Dates: end: 20191202
  38. LAC-B GRANULAR POWDER N [Concomitant]
     Dosage: 1 GRAM, BID
     Route: 048
     Dates: start: 20210127, end: 20210216
  39. AMEZINIUM METILSULFATE [Concomitant]
     Active Substance: AMEZINIUM METILSULFATE
     Indication: Hypotension
     Dosage: 20 MILLIGRAM
     Route: 048
     Dates: end: 20200406
  40. AMEZINIUM METILSULFATE [Concomitant]
     Active Substance: AMEZINIUM METILSULFATE
     Indication: Hypotension
     Dosage: 10 MILLIGRAM, BID
     Route: 048
     Dates: start: 20200407
  41. POTASSIUM ASPARTATE [Concomitant]
     Active Substance: POTASSIUM ASPARTATE
     Indication: Hypokalaemia
     Dosage: 300 MILLIGRAM, TID
     Route: 048
     Dates: start: 20200324, end: 20200428
  42. POTASSIUM ASPARTATE [Concomitant]
     Active Substance: POTASSIUM ASPARTATE
     Dosage: 300 MILLIGRAM, QD
     Route: 048
     Dates: start: 20200429, end: 20201126
  43. POTASSIUM ASPARTATE [Concomitant]
     Active Substance: POTASSIUM ASPARTATE
     Dosage: 300 MILLIGRAM, BID
     Route: 048
     Dates: start: 20210127
  44. MIYA-BM [Concomitant]
     Active Substance: CLOSTRIDIUM BUTYRICUM SPORES STRAIN M-55
     Indication: Dysbiosis
     Dosage: 1 DOSAGE FORM, TID
     Route: 048
     Dates: start: 20201028, end: 20210216
  45. MIYA-BM [Concomitant]
     Active Substance: CLOSTRIDIUM BUTYRICUM SPORES STRAIN M-55
     Dosage: 1 DOSAGE FORM, TID
     Route: 048
     Dates: start: 20210421
  46. AMOXICILLIN [Concomitant]
     Active Substance: AMOXICILLIN
     Indication: Tooth extraction
     Dosage: 250 MILLIGRAM, TID
     Route: 048
     Dates: start: 20200713, end: 20200714
  47. CALONAL [Concomitant]
     Active Substance: ACETAMINOPHEN
     Indication: Neuropathy peripheral
     Dosage: 500 MILLIGRAM, PRN
     Route: 048
     Dates: start: 20200916
  48. CALONAL [Concomitant]
     Active Substance: ACETAMINOPHEN
     Indication: Neuropathy peripheral
     Dosage: 500 MILLIGRAM, PRN
     Route: 065
  49. FELBINAC [Concomitant]
     Active Substance: FELBINAC
     Indication: Neuropathy peripheral
     Dosage: APPROPRIATE AMOUNT, 2-3 TIMES/DAY
     Dates: start: 20200916, end: 20201118
  50. HERBAL NOS [Concomitant]
     Active Substance: HERBALS
     Indication: Cardiac ablation
     Dosage: 7.5 GRAM, TID
     Route: 065
     Dates: start: 20201001, end: 20201005
  51. AMBROXOL HYDROCHLORIDE [Concomitant]
     Active Substance: AMBROXOL HYDROCHLORIDE
     Indication: Cardiac ablation
     Dosage: 45 MILLIGRAM, QD
     Route: 048
     Dates: start: 20201001, end: 20201004
  52. NORADRENALINE+SOLACET F+SODIUM CHLORIDE SOLUTION.ISOTONIC [Concomitant]
     Indication: Hereditary neuropathic amyloidosis
     Dosage: 500 MILLILITER (NORADRENALINE 0.02 G, CONTINUOUS), QD
     Route: 065
     Dates: start: 20201002, end: 20201004
  53. NORADRENALINE+SOLACET F+SODIUM CHLORIDE SOLUTION.ISOTONIC [Concomitant]
     Indication: Autonomic neuropathy
  54. NORADRENALINE+SOLACET F+SODIUM CHLORIDE SOLUTION.ISOTONIC [Concomitant]
     Indication: Blood pressure decreased
  55. NORADRENALINE+SOLACET F+SODIUM CHLORIDE SOLUTION.ISOTONIC [Concomitant]
     Indication: Anaesthesia procedure
  56. VONOPRAZAN FUMARATE [Concomitant]
     Active Substance: VONOPRAZAN FUMARATE
     Indication: Prophylaxis against gastrointestinal ulcer
     Dosage: 10 MILLIGRAM, QD
     Route: 065
     Dates: start: 20201006
  57. BISOPROLOL FUMARATE [Concomitant]
     Active Substance: BISOPROLOL FUMARATE
     Indication: Cardiac failure
     Dosage: 0.625 MILLIGRAM, QD
     Route: 048
     Dates: start: 20201023, end: 20201126
  58. BISOPROLOL FUMARATE [Concomitant]
     Active Substance: BISOPROLOL FUMARATE
     Dosage: 1.25 MILLIGRAM, QD
     Route: 048
     Dates: start: 20201127
  59. AZOSEMIDE [Concomitant]
     Active Substance: AZOSEMIDE
     Indication: Cardiac failure
     Dosage: 15 MILLIGRAM, QD
     Route: 048
     Dates: start: 20191116, end: 20201217
  60. AZOSEMIDE [Concomitant]
     Active Substance: AZOSEMIDE
     Dosage: 30 MILLIGRAM, PRN
     Route: 048
     Dates: start: 20200219, end: 20200713
  61. AZOSEMIDE [Concomitant]
     Active Substance: AZOSEMIDE
     Dosage: 30 MILLIGRAM, QD
     Route: 048
     Dates: start: 20200714
  62. AZOSEMIDE [Concomitant]
     Active Substance: AZOSEMIDE
     Dosage: 30 MILLIGRAM, QD
     Route: 048
     Dates: start: 20201127

REACTIONS (12)
  - Seizure [Recovered/Resolved]
  - Ventricular arrhythmia [Unknown]
  - Muscular weakness [Recovered/Resolved]
  - Cardiac failure [Recovered/Resolved]
  - Oedema peripheral [Recovered/Resolved]
  - Pleural effusion [Recovered/Resolved]
  - Atrial fibrillation [Recovered/Resolved]
  - Blood pressure decreased [Recovered/Resolved]
  - Neurogenic bladder [Recovered/Resolved]
  - Hypokalaemia [Recovered/Resolved]
  - Gastrooesophageal reflux disease [Unknown]
  - Constipation [Recovered/Resolved]

NARRATIVE: CASE EVENT DATE: 20191111
